FAERS Safety Report 9809303 (Version 2)
Quarter: 2014Q1

REPORT INFORMATION
  Report Type: Spontaneous
  Country: US (occurrence: US)
  Receive Date: 20140110
  Receipt Date: 20140110
  Transmission Date: 20141002
  Serious: Yes (Hospitalization)
  Sender: FDA-Public Use
  Company Number: US-ELI_LILLY_AND_COMPANY-US201309005516

PATIENT
  Age: 26 Year
  Sex: Male
  Weight: 91.61 kg

DRUGS (4)
  1. HUMALOG 25% LISPRO, 75% NPL [Suspect]
     Indication: TYPE 1 DIABETES MELLITUS
     Dosage: 30 U, EACH MORNING
     Route: 058
     Dates: end: 20130916
  2. HUMALOG 25% LISPRO, 75% NPL [Suspect]
     Dosage: 25 U, EACH EVENING
     Route: 058
     Dates: end: 20130916
  3. HUMALOG 25% LISPRO, 75% NPL [Suspect]
     Dosage: 30 U, EACH MORNING
     Route: 058
     Dates: start: 20131217
  4. HUMALOG 25% LISPRO, 75% NPL [Suspect]
     Dosage: 25 U, EACH EVENING
     Route: 058
     Dates: start: 20131217

REACTIONS (2)
  - Diabetes mellitus inadequate control [Unknown]
  - Drug dose omission [Unknown]
